FAERS Safety Report 15906960 (Version 12)
Quarter: 2022Q4

REPORT INFORMATION
  Report Type: Spontaneous
  Country: US (occurrence: US)
  Receive Date: 20190204
  Receipt Date: 20221227
  Transmission Date: 20230113
  Serious: No
  Sender: FDA-Public Use
  Company Number: US-PFIZER INC-2019051580

PATIENT
  Age: 71 Year
  Sex: Male
  Weight: 104 kg

DRUGS (1)
  1. TOVIAZ [Suspect]
     Active Substance: FESOTERODINE FUMARATE
     Indication: Dysuria
     Dosage: 8 MG, 1X/DAY
     Route: 048
     Dates: start: 200912

REACTIONS (6)
  - Hypoacusis [Not Recovered/Not Resolved]
  - Discomfort [Unknown]
  - Tremor [Unknown]
  - Intentional product misuse [Unknown]
  - Product dose omission issue [Unknown]
  - Intercepted product prescribing error [Unknown]

NARRATIVE: CASE EVENT DATE: 20100601
